FAERS Safety Report 5327150-X (Version None)
Quarter: 2007Q2

REPORT INFORMATION
  Report Type: 
  Country: None (occurrence: None)
  Receive Date: 20070517
  Receipt Date: 20070510
  Transmission Date: 20071010
  Serious: Yes (Other)
  Sender: FDA-Public Use
  Company Number: PHBS2007CH08092

PATIENT
  Age: 73 Year
  Sex: Female

DRUGS (1)
  1. GLEEVEC [Suspect]
     Indication: CHRONIC MYELOID LEUKAEMIA
     Dosage: 400 MG/D
     Route: 065
     Dates: start: 20010101

REACTIONS (3)
  - BONE FORMATION DECREASED [None]
  - DEVICE FAILURE [None]
  - KNEE ARTHROPLASTY [None]
